FAERS Safety Report 5421732-2 (Version None)
Quarter: 2007Q3

REPORT INFORMATION
  Report Type: 
  Country: None (occurrence: None)
  Receive Date: 20070821
  Receipt Date: 20070815
  Transmission Date: 20080115
  Serious: Yes (Hospitalization)
  Sender: FDA-Public Use
  Company Number: US-PFIZER INC-2007067889

PATIENT
  Sex: Male
  Weight: 86.2 kg

DRUGS (1)
  1. BEXTRA [Suspect]
     Indication: BACK DISORDER
     Dates: start: 20030101, end: 20030501

REACTIONS (1)
  - CEREBROVASCULAR ACCIDENT [None]
